FAERS Safety Report 17921162 (Version 1)
Quarter: 2020Q2

REPORT INFORMATION
  Report Type: Spontaneous
  Country: DE (occurrence: DE)
  Receive Date: 20200622
  Receipt Date: 20200622
  Transmission Date: 20200714
  Serious: Yes (Hospitalization)
  Sender: FDA-Public Use
  Company Number: DE-TEVA-2020-DE-1788789

PATIENT
  Age: 74 Year
  Sex: Female

DRUGS (8)
  1. LEVOTHYROXIN-NATRIUM [Concomitant]
     Active Substance: LEVOTHYROXINE SODIUM
     Dosage: 12.5 MICROGRAM DAILY; 1-0-0-0
     Route: 048
  2. EUTHYROX 50MIKROGRAMM [Concomitant]
     Dosage: 50 MICROGRAM DAILY; 1-0-0-0
     Route: 048
  3. CANDESARTAN. [Concomitant]
     Active Substance: CANDESARTAN
     Dosage: 16 MILLIGRAM DAILY; 0-1-0-0
     Route: 048
  4. DULOXETIN [Suspect]
     Active Substance: DULOXETINE
     Dosage: 2-0-1-0
     Route: 048
  5. ACETYLSALICYLSAURE [Suspect]
     Active Substance: ASPIRIN
     Dosage: 100 MILLIGRAM DAILY; 1-0-0-0
     Route: 048
  6. DEKRISTOL 20000I.E. [Concomitant]
     Dosage: 20,000 IU / WEEK, 1X
     Route: 048
  7. OMEPRAZOL [Concomitant]
     Active Substance: OMEPRAZOLE
     Dosage: 40 MILLIGRAM DAILY; 1-0-0-0
     Route: 048
  8. HYDROCHLOROTHIAZID/METOPROLOL [Concomitant]
     Dosage: 1 DOSAGE FORMS DAILY; 12.5|100 MG, 1-0-0-0
     Route: 048

REACTIONS (3)
  - Condition aggravated [Unknown]
  - Fall [Unknown]
  - Haematuria [Unknown]
